FAERS Safety Report 19047693 (Version 1)
Quarter: 2021Q1

REPORT INFORMATION
  Report Type: Spontaneous
  Country: US (occurrence: US)
  Receive Date: 20210324
  Receipt Date: 20210324
  Transmission Date: 20210420
  Serious: No
  Sender: FDA-Public Use
  Company Number: US-ORGANON-O2103USA001531

PATIENT
  Age: 20 Year
  Sex: Female
  Weight: 61.22 kg

DRUGS (2)
  1. NEXPLANON [Suspect]
     Active Substance: ETONOGESTREL
     Indication: CONTRACEPTION
     Dosage: 1 IMPLANT; INITIALLY
     Route: 059
     Dates: start: 2016, end: 201911
  2. NEXPLANON [Suspect]
     Active Substance: ETONOGESTREL
     Indication: CONTRACEPTION
     Dosage: 1 IMPLANT; RE?INSERTED
     Route: 059
     Dates: start: 201911

REACTIONS (4)
  - Menstrual disorder [Not Recovered/Not Resolved]
  - Menometrorrhagia [Recovered/Resolved]
  - Menstrual disorder [Recovered/Resolved]
  - Menometrorrhagia [Not Recovered/Not Resolved]

NARRATIVE: CASE EVENT DATE: 202006
